FAERS Safety Report 5447730-0 (Version None)
Quarter: 2007Q3

REPORT INFORMATION
  Report Type: 
  Country: None (occurrence: None)
  Receive Date: 20070910
  Receipt Date: 20070903
  Transmission Date: 20080115
  Serious: Yes (Hospitalization)
  Sender: FDA-Public Use
  Company Number: FR-ELI_LILLY_AND_COMPANY-FR200709000577

PATIENT
  Age: 69 Year
  Sex: Male

DRUGS (4)
  1. GEMZAR [Suspect]
     Indication: PANCREATIC CARCINOMA
     Dosage: 1960 MG, OTHER
     Route: 042
     Dates: start: 20070726, end: 20070726
  2. ELOXATIN [Concomitant]
     Indication: PANCREATIC CARCINOMA
     Dosage: 165 MG, OTHER
     Route: 042
     Dates: start: 20070726, end: 20070726
  3. ONDANSETRON [Concomitant]
     Dosage: 8 MG, DAILY (1/D)
     Route: 042
     Dates: start: 20070726, end: 20070726
  4. SOLU-MEDROL [Concomitant]
     Dosage: 60 MG, DAILY (1/D)
     Route: 042
     Dates: start: 20070726, end: 20070726

REACTIONS (3)
  - GINGIVAL BLEEDING [None]
  - THROMBOCYTOPENIA [None]
  - TONGUE HAEMATOMA [None]
